FAERS Safety Report 4870157-7 (Version None)
Quarter: 2005Q4

REPORT INFORMATION
  Report Type: 
  Country: None (occurrence: None)
  Receive Date: 20051229
  Receipt Date: 20051229
  Transmission Date: 20060501
  Serious: Yes (Hospitalization)
  Sender: FDA-Public Use
  Company Number: None

PATIENT
  Sex: Male
  Weight: 72.5 kg

DRUGS (2)
  1. FLUDARABINE [Suspect]
     Indication: STEM CELL TRANSPLANT
     Dosage: 57MG  ONCE A DAY  IV DRIP
     Route: 041
     Dates: start: 20050504, end: 20050508
  2. MELPHALN [Suspect]
     Dosage: 266   ONCE A DAY   IV DRIP
     Route: 041
     Dates: start: 20050509, end: 20050509

REACTIONS (2)
  - HYPOXIA [None]
  - PNEUMONIA [None]
